FAERS Safety Report 7103351-5 (Version None)
Quarter: 2010Q4

REPORT INFORMATION
  Report Type: 
  Country: None (occurrence: None)
  Receive Date: 20101115
  Receipt Date: 20101109
  Transmission Date: 20110411
  Serious: Yes (Other)
  Sender: FDA-Public Use
  Company Number: JP-PFIZER INC-2010138384

PATIENT
  Age: 75 Year
  Sex: Male

DRUGS (3)
  1. LYRICA [Suspect]
     Indication: SCIATICA
     Dosage: 150MG/DAY
     Route: 048
     Dates: start: 20101025, end: 20101029
  2. LORCAM [Suspect]
     Indication: SCIATICA
     Dosage: 12MG/DAY
     Route: 048
     Dates: start: 20101022, end: 20101025
  3. VALTREX [Suspect]
     Dosage: UNK
     Dates: start: 20101025, end: 20101029

REACTIONS (1)
  - HAEMATOCHEZIA [None]
